FAERS Safety Report 18407484 (Version 2)
Quarter: 2020Q4

REPORT INFORMATION
  Report Type: Spontaneous
  Country: US (occurrence: US)
  Receive Date: 20201021
  Receipt Date: 20201127
  Transmission Date: 20210114
  Serious: No
  Sender: FDA-Public Use
  Company Number: US-APOTEX-2020AP019847

PATIENT
  Sex: Female

DRUGS (1)
  1. NICOTINE. [Suspect]
     Active Substance: NICOTINE
     Indication: PRODUCT USED FOR UNKNOWN INDICATION
     Dosage: 1 DOSAGE FORM, QD (1/24HRS)
     Route: 065
     Dates: start: 2020

REACTIONS (1)
  - Product odour abnormal [Unknown]

NARRATIVE: CASE EVENT DATE: 2020
